FAERS Safety Report 25701667 (Version 1)
Quarter: 2025Q3

REPORT INFORMATION
  Report Type: Spontaneous
  Country: US (occurrence: US)
  Receive Date: 20250819
  Receipt Date: 20250819
  Transmission Date: 20251021
  Serious: No
  Sender: REGENERON
  Company Number: US-REGENERON PHARMACEUTICALS, INC.-2024-127817

PATIENT
  Sex: Female

DRUGS (4)
  1. PRALUENT [Suspect]
     Active Substance: ALIROCUMAB
     Indication: Hypercholesterolaemia
     Dosage: 75 MG, Q2W
     Route: 058
     Dates: start: 202409
  2. PRALUENT [Suspect]
     Active Substance: ALIROCUMAB
     Indication: Familial risk factor
  3. COVID-19 VACCINE NOS [Suspect]
     Active Substance: COVID-19 VACCINE
     Indication: Product used for unknown indication
     Route: 065
     Dates: start: 20240921, end: 20240921
  4. EZETIMIBE [Concomitant]
     Active Substance: EZETIMIBE
     Indication: Product used for unknown indication
     Route: 065

REACTIONS (7)
  - Abdominal pain upper [Unknown]
  - Malaise [Unknown]
  - Decreased appetite [Unknown]
  - Asthenia [Unknown]
  - Pyrexia [Unknown]
  - Vaccination site movement impairment [Unknown]
  - Influenza [Unknown]

NARRATIVE: CASE EVENT DATE: 20240901
